FAERS Safety Report 13936323 (Version 2)
Quarter: 2017Q3

REPORT INFORMATION
  Report Type: Spontaneous
  Country: US (occurrence: US)
  Receive Date: 20170905
  Receipt Date: 20170922
  Transmission Date: 20171127
  Serious: No
  Sender: FDA-Public Use
  Company Number: US-GLAXOSMITHKLINE-US2017131969

PATIENT
  Age: 67 Year
  Sex: Female

DRUGS (1)
  1. VOLTAREN [Suspect]
     Active Substance: DICLOFENAC SODIUM
     Indication: ARTHRITIS
     Dosage: ONE TIME
     Dates: start: 20170818, end: 20170818

REACTIONS (3)
  - Pain [Not Recovered/Not Resolved]
  - Product quality issue [Unknown]
  - Burning sensation [Not Recovered/Not Resolved]
